FAERS Safety Report 7540523-X (Version None)
Quarter: 2011Q2

REPORT INFORMATION
  Report Type: 
  Country: None (occurrence: None)
  Receive Date: 20110610
  Receipt Date: 20110602
  Transmission Date: 20111010
  Serious: Yes (Hospitalization)
  Sender: FDA-Public Use
  Company Number: A0930956A

PATIENT
  Age: 54 Year
  Sex: Female
  Weight: 90 kg

DRUGS (5)
  1. LAMICTAL [Suspect]
     Dosage: 100MG UNKNOWN
     Route: 048
  2. LYRICA [Suspect]
     Indication: CONVULSION
     Route: 048
     Dates: start: 19990101
  3. DILANTIN [Suspect]
     Indication: CONVULSION
     Dosage: 100MG FIVE TIMES PER DAY
     Route: 048
     Dates: start: 19990101
  4. NONE [Concomitant]
  5. LYRICA [Suspect]
     Dosage: 375MG PER DAY
     Route: 048

REACTIONS (4)
  - ANKLE FRACTURE [None]
  - JOINT SWELLING [None]
  - BALANCE DISORDER [None]
  - HEMIPARESIS [None]
